FAERS Safety Report 14931064 (Version 1)
Quarter: 2018Q2

REPORT INFORMATION
  Report Type: Spontaneous
  Country: IR (occurrence: IR)
  Receive Date: 20180524
  Receipt Date: 20180524
  Transmission Date: 20180711
  Serious: No
  Sender: FDA-Public Use
  Company Number: IR-LUPIN PHARMACEUTICALS INC.-2017-07304

PATIENT
  Age: 65 Year
  Sex: Female

DRUGS (4)
  1. QUETIAPINE. [Suspect]
     Active Substance: QUETIAPINE
     Indication: BIPOLAR DISORDER
     Dosage: 12.5 MG, QD, AT NIGHT
     Route: 065
  2. QUETIAPINE. [Suspect]
     Active Substance: QUETIAPINE
     Dosage: 25 MG, QD
     Route: 065
  3. QUETIAPINE. [Suspect]
     Active Substance: QUETIAPINE
     Dosage: 50 MG IN THE MORNING, 100 MG AT NOON, AND 150 MG AT NIGHT
     Route: 065
  4. QUETIAPINE. [Suspect]
     Active Substance: QUETIAPINE
     Dosage: (100 MG AT NOON AND 200 MG AT NIGHT
     Route: 065

REACTIONS (2)
  - Enuresis [Recovered/Resolved]
  - Sedation [Recovered/Resolved]
